FAERS Safety Report 12570361 (Version 1)
Quarter: 2016Q3

REPORT INFORMATION
  Report Type: Report from Study
  Country: US (occurrence: US)
  Receive Date: 20160719
  Receipt Date: 20160719
  Transmission Date: 20161109
  Serious: Yes (Death, Other)
  Sender: FDA-Public Use
  Company Number: US-GILEAD-2016-0223914

PATIENT
  Age: 81 Year
  Sex: Male

DRUGS (1)
  1. RANOLAZINE [Suspect]
     Active Substance: RANOLAZINE
     Indication: ANGINA PECTORIS
     Dosage: 500 MG, BID
     Route: 048
     Dates: end: 20160629

REACTIONS (5)
  - Wrong technique in product usage process [Unknown]
  - Burns second degree [Unknown]
  - Death [Fatal]
  - Pneumonia [Unknown]
  - Burns third degree [Unknown]

NARRATIVE: CASE EVENT DATE: 20160629
